FAERS Safety Report 9728061 (Version 1)
Quarter: 2013Q4

REPORT INFORMATION
  Report Type: Spontaneous
  Country: US (occurrence: None)
  Receive Date: 20131203
  Receipt Date: 20131203
  Transmission Date: 20140711
  Serious: Yes (Disabling)
  Sender: FDA-Public Use
  Company Number: None

PATIENT
  Age: 39 Year
  Sex: Female
  Weight: 68.04 kg

DRUGS (1)
  1. LYRICA [Suspect]
     Indication: PAIN
     Dosage: ONE PILL ONCE DAILY TAKEN BY MOUTH
     Route: 048

REACTIONS (5)
  - Swelling [None]
  - Weight increased [None]
  - Hypothyroidism [None]
  - Liver function test abnormal [None]
  - Localised intraabdominal fluid collection [None]
